FAERS Safety Report 5674540-1 (Version None)
Quarter: 2008Q1

REPORT INFORMATION
  Report Type: 
  Country: None (occurrence: None)
  Receive Date: 20080307
  Receipt Date: 20080304
  Transmission Date: 20080703
  Serious: Yes (Other)
  Sender: FDA-Public Use
  Company Number: 200712622

PATIENT
  Age: 45 Year
  Sex: Female
  Weight: 105.4 kg

DRUGS (16)
  1. VIVAGLOBIN [Suspect]
     Indication: COMBINED IMMUNODEFICIENCY
     Dosage: 114 ML Q1W SC, 114 ML Q1W SC, 114 ML Q1W SC
     Route: 058
     Dates: start: 20071209
  2. VIVAGLOBIN [Suspect]
  3. PHYLLOCONTIN [Concomitant]
  4. QVAR 40 [Concomitant]
  5. SEREVENT [Concomitant]
  6. CO-AMILOFRUSE [Concomitant]
  7. ATROVENT [Concomitant]
  8. SALBUTAMOL [Concomitant]
  9. QUININE SULPHATE [Concomitant]
  10. PREGABALIN [Concomitant]
  11. NEXIUM [Concomitant]
  12. RANITIDINE [Concomitant]
  13. CITALOPRAM [Concomitant]
  14. ALVERINE [Concomitant]
  15. DOMPERIDONE [Concomitant]
  16. NUVELLE /00346801/ [Concomitant]

REACTIONS (9)
  - ABDOMINAL DISTENSION [None]
  - ERYSIPELAS [None]
  - INFUSION SITE BRUISING [None]
  - INFUSION SITE ERYTHEMA [None]
  - INFUSION SITE RASH [None]
  - INJECTION SITE REACTION [None]
  - LOCAL REACTION [None]
  - MIGRAINE [None]
  - RASH ERYTHEMATOUS [None]
